FAERS Safety Report 18761525 (Version 2)
Quarter: 2021Q1

REPORT INFORMATION
  Report Type: Spontaneous
  Country: PT (occurrence: PT)
  Receive Date: 20210120
  Receipt Date: 20210122
  Transmission Date: 20210419
  Serious: Yes (Hospitalization, Other)
  Sender: FDA-Public Use
  Company Number: PT-TEVA-2021-PT-1869612

PATIENT
  Age: 54 Year
  Sex: Male

DRUGS (4)
  1. FOLINIC ACID [Concomitant]
     Active Substance: LEUCOVORIN
     Indication: PANCREATIC CARCINOMA METASTATIC
     Route: 065
  2. FOLINIC ACID [Concomitant]
     Active Substance: LEUCOVORIN
     Indication: METASTASES TO LIVER
  3. FLUOROURACIL. [Suspect]
     Active Substance: FLUOROURACIL
     Indication: PANCREATIC CARCINOMA METASTATIC
     Route: 065
  4. FLUOROURACIL. [Suspect]
     Active Substance: FLUOROURACIL
     Indication: METASTASES TO LIVER

REACTIONS (4)
  - Respiratory alkalosis [Recovering/Resolving]
  - Hyperammonaemic encephalopathy [Recovering/Resolving]
  - Hemiparesis [Recovering/Resolving]
  - Aphasia [Recovering/Resolving]
